FAERS Safety Report 5622590-3 (Version None)
Quarter: 2008Q1

REPORT INFORMATION
  Report Type: 
  Country: None (occurrence: None)
  Receive Date: 20080206
  Receipt Date: 20080206
  Transmission Date: 20080703
  Serious: No
  Sender: FDA-Public Use
  Company Number: None

PATIENT
  Sex: Female
  Weight: 61 kg

DRUGS (14)
  1. SIMVASTATIN [Suspect]
     Indication: HYPERCHOLESTEROLAEMIA
     Dosage: ONE TABLET DAILY BY MOUTH
     Route: 048
     Dates: start: 20071001, end: 20080101
  2. PREDNISONE TAB [Concomitant]
  3. CELLCEPT [Concomitant]
  4. PROGRAF [Concomitant]
  5. ATENOLOL [Concomitant]
  6. COZAAR [Concomitant]
  7. HYDROCHLOROTHIAZIDE [Concomitant]
  8. CALCIUM CARBONATE [Concomitant]
  9. ACYCLOVIR [Concomitant]
  10. MULTI-VITAMIN [Concomitant]
  11. PROTONIX [Concomitant]
  12. FOLIC ACID [Concomitant]
  13. FOSAMAX [Concomitant]
  14. BYETTA [Concomitant]

REACTIONS (4)
  - BACK PAIN [None]
  - DRUG INTOLERANCE [None]
  - MUSCULOSKELETAL PAIN [None]
  - NECK PAIN [None]
